FAERS Safety Report 13291044 (Version 1)
Quarter: 2017Q1

REPORT INFORMATION
  Report Type: Report from Study
  Country: None (occurrence: US)
  Receive Date: 20170303
  Receipt Date: 20170303
  Transmission Date: 20170428
  Serious: Yes (Other)
  Sender: FDA-Public Use
  Company Number: US-ABBVIE-17K-163-1890657-00

PATIENT
  Sex: Female

DRUGS (1)
  1. HUMIRA [Suspect]
     Active Substance: ADALIMUMAB
     Indication: CROHN^S DISEASE
     Route: 058
     Dates: start: 201602, end: 201612

REACTIONS (6)
  - Peripheral swelling [Unknown]
  - Urinary tract infection [Unknown]
  - Superinfection [Unknown]
  - Erythema nodosum [Unknown]
  - Crohn^s disease [Not Recovered/Not Resolved]
  - Candida infection [Unknown]
